FAERS Safety Report 7658335-5 (Version None)
Quarter: 2011Q3

REPORT INFORMATION
  Report Type: 
  Country: None (occurrence: None)
  Receive Date: 20110802
  Receipt Date: 20110721
  Transmission Date: 20111222
  Serious: Yes (Hospitalization, Other)
  Sender: FDA-Public Use
  Company Number: 2011MA009215

PATIENT
  Age: 51 Year
  Sex: Female
  Weight: 62.5964 kg

DRUGS (3)
  1. TRAMADOL HCL [Suspect]
     Dates: end: 20110101
  2. ADVIL LIQUI-GELS [Suspect]
     Indication: INTERVERTEBRAL DISC PROTRUSION
     Dates: start: 20101101
  3. METOPROLOL TARTRATE [Concomitant]

REACTIONS (5)
  - ABDOMINAL PAIN UPPER [None]
  - BLOOD PRESSURE INCREASED [None]
  - CHEST PAIN [None]
  - SOMNOLENCE [None]
  - HAEMORRHAGE [None]
